FAERS Safety Report 10256761 (Version 16)
Quarter: 2018Q4

REPORT INFORMATION
  Report Type: Spontaneous
  Country: US (occurrence: US)
  Receive Date: 20140624
  Receipt Date: 20181004
  Transmission Date: 20190204
  Serious: Yes (Hospitalization)
  Sender: FDA-Public Use
  Company Number: US-ACTELION-A-NJ2014-099979

PATIENT
  Age: 55 Year
  Sex: Female
  Weight: 42.63 kg

DRUGS (6)
  1. REVATIO [Concomitant]
     Active Substance: SILDENAFIL CITRATE
  2. XARELTO [Concomitant]
     Active Substance: RIVAROXABAN
  3. RIOCIGUAT. [Concomitant]
     Active Substance: RIOCIGUAT
  4. OPSUMIT [Suspect]
     Active Substance: MACITENTAN
     Indication: PULMONARY HYPERTENSION
     Dosage: 10 MG, QD
     Route: 048
     Dates: start: 20140203
  5. VELETRI [Suspect]
     Active Substance: EPOPROSTENOL
     Indication: PULMONARY HYPERTENSION
     Dosage: 60 NG/KG, PER MIN
     Route: 042
     Dates: start: 20110919
  6. VELETRI [Suspect]
     Active Substance: EPOPROSTENOL
     Dosage: 61 NG/KG, PER MIN
     Route: 042

REACTIONS (24)
  - Clostridium difficile infection [Unknown]
  - Diarrhoea [Unknown]
  - Chest pain [Unknown]
  - Pallor [Recovered/Resolved]
  - Pain in jaw [Recovered/Resolved]
  - Myocardial infarction [Unknown]
  - Influenza [Recovered/Resolved]
  - Arthralgia [Unknown]
  - Pneumonia [Unknown]
  - Vascular device infection [Unknown]
  - Erythema [Recovered/Resolved]
  - Nerve compression [Unknown]
  - Device leakage [Unknown]
  - Dyspnoea [Unknown]
  - Decreased appetite [Unknown]
  - Feeling jittery [Recovered/Resolved]
  - Pyrexia [Unknown]
  - Sepsis [Unknown]
  - Asthenia [Recovered/Resolved]
  - Oxygen therapy [Unknown]
  - Nausea [Unknown]
  - Dyspnoea exertional [Unknown]
  - Rash macular [Not Recovered/Not Resolved]
  - Pain in extremity [Recovered/Resolved]

NARRATIVE: CASE EVENT DATE: 20180224
